FAERS Safety Report 4407506-X (Version None)
Quarter: 2004Q3

REPORT INFORMATION
  Report Type: 
  Country: None (occurrence: None)
  Receive Date: 20040721
  Receipt Date: 20040709
  Transmission Date: 20050211
  Serious: Yes (Hospitalization)
  Sender: FDA-Public Use
  Company Number: 04P-056-0264248-00

PATIENT
  Age: 40 Year
  Sex: Male

DRUGS (7)
  1. KALETRA [Suspect]
     Dosage: PER ORAL
     Route: 048
     Dates: start: 20030401, end: 20040613
  2. ZIDOVUDINE W/LAMIVUDINE [Suspect]
     Dosage: 1 DOSAGE FORMS, 2 IN 1 D, PER ORAL
     Route: 048
     Dates: start: 20030401, end: 20040613
  3. CLINDAMYCIN HYDROCHLORIDE [Concomitant]
  4. CALCIUM FOLINATE [Concomitant]
  5. PYRIMETHAMINE TAB [Concomitant]
  6. MINIRIN (DESMOPRESSIN ACETATE) [Concomitant]
  7. POTASSIUM CHLORIDE [Concomitant]

REACTIONS (3)
  - COMA [None]
  - HYPERTRIGLYCERIDAEMIA [None]
  - PANCREATITIS [None]
